FAERS Safety Report 8308786-0 (Version None)
Quarter: 2012Q2

REPORT INFORMATION
  Report Type: 
  Country: None (occurrence: None)
  Receive Date: 20120424
  Receipt Date: 20120416
  Transmission Date: 20120825
  Serious: Yes (Hospitalization, Other)
  Sender: FDA-Public Use
  Company Number: HK-ABBOTT-12P-075-0926685-00

PATIENT
  Age: 81 Year
  Sex: Female

DRUGS (1)
  1. CLARITHROMYCIN [Suspect]
     Indication: PRODUCT USED FOR UNKNOWN INDICATION
     Dosage: 500MG/VIAL
     Route: 050

REACTIONS (5)
  - CONTUSION [None]
  - WRONG TECHNIQUE IN DRUG USAGE PROCESS [None]
  - DEEP VEIN THROMBOSIS [None]
  - OEDEMA PERIPHERAL [None]
  - LOWER RESPIRATORY TRACT INFECTION [None]
